FAERS Safety Report 9288369 (Version 1)
Quarter: 2013Q2

REPORT INFORMATION
  Report Type: Spontaneous
  Country: DE (occurrence: DE)
  Receive Date: 20130514
  Receipt Date: 20130514
  Transmission Date: 20140414
  Serious: Yes (Other)
  Sender: FDA-Public Use
  Company Number: DE-PFIZER INC-2013145906

PATIENT
  Age: 73 Year
  Sex: Female

DRUGS (1)
  1. UNACID [Suspect]
     Indication: PYELONEPHRITIS
     Dosage: 2 DF, 3X/DAY
     Dates: start: 20130505

REACTIONS (2)
  - Haematochezia [Unknown]
  - Diarrhoea [Unknown]
